FAERS Safety Report 8286885-X (Version None)
Quarter: 2012Q2

REPORT INFORMATION
  Report Type: 
  Country: None (occurrence: None)
  Receive Date: 20120416
  Receipt Date: 20120406
  Transmission Date: 20120825
  Serious: Yes (Hospitalization, Other)
  Sender: FDA-Public Use
  Company Number: US-BAYER-2012-031176

PATIENT
  Age: 44 Year
  Sex: Female

DRUGS (15)
  1. YASMIN [Suspect]
     Dosage: UNK
     Route: 048
     Dates: start: 20010101, end: 20100324
  2. LISINOPRIL [Concomitant]
     Indication: HYPERTENSION
     Dosage: 10 MG, UNK
     Route: 048
  3. CHLORTHALIDONE [Concomitant]
     Dosage: 25 MG, UNK
  4. CYMBALTA [Concomitant]
     Dosage: 60 MG, UNK
     Route: 048
  5. METHOCARBAMOL [Concomitant]
     Dosage: 750 MG, PRN
     Route: 048
  6. LYRICA [Concomitant]
     Dosage: 100 MG, TID
     Route: 048
  7. YAZ [Suspect]
     Dosage: UNK
     Route: 048
     Dates: start: 20010101, end: 20100324
  8. LEXAPRO [Concomitant]
     Dosage: 20 MG, UNK
     Route: 048
  9. SYNTHROID [Concomitant]
     Dosage: 75 MG, UNK
     Route: 048
  10. METOPROLOL TARTRATE [Concomitant]
     Dosage: 25 MG, BID
     Route: 048
  11. AMBIEN [Concomitant]
  12. VALIUM [Concomitant]
     Indication: MUSCLE SPASMS
     Dosage: 5 MG, QID
  13. HYDROCODONE BITARTRATE [Concomitant]
     Dosage: 10/325 MG/TID
     Route: 048
  14. PROMETHAZINE [Concomitant]
     Dosage: 25 MG, PRN
     Route: 048
  15. METFORMIN HCL [Concomitant]
     Dosage: 1000 MG, BID
     Route: 048

REACTIONS (3)
  - THROMBOSIS [None]
  - DEEP VEIN THROMBOSIS [None]
  - INJURY [None]
